FAERS Safety Report 12949628 (Version 1)
Quarter: 2016Q4

REPORT INFORMATION
  Report Type: Spontaneous
  Country: TW (occurrence: US)
  Receive Date: 20161117
  Receipt Date: 20161117
  Transmission Date: 20170207
  Serious: No
  Sender: FDA-Public Use
  Company Number: TW-WATSON-2015-28094

PATIENT
  Sex: Female

DRUGS (1)
  1. MODAFINIL (UNKNOWN) [Suspect]
     Active Substance: MODAFINIL
     Indication: PRODUCT USED FOR UNKNOWN INDICATION
     Dosage: UNKNOWN
     Route: 065

REACTIONS (2)
  - Sleep disorder [Unknown]
  - Drug ineffective [Unknown]
